FAERS Safety Report 4704072-6 (Version None)
Quarter: 2005Q2

REPORT INFORMATION
  Report Type: 
  Country: None (occurrence: None)
  Receive Date: 20050629
  Receipt Date: 20050614
  Transmission Date: 20051028
  Serious: No
  Sender: FDA-Public Use
  Company Number: 11620

PATIENT
  Age: 74 Year
  Sex: Male

DRUGS (2)
  1. MITOXANTRONE [Suspect]
     Indication: BLADDER CANCER
     Dosage: 60 MG/M2 TOTAL
  2. MITOMYCIN [Suspect]
     Indication: BLADDER CANCER
     Dosage: 80 MG/M2 TOTAL

REACTIONS (3)
  - ACUTE PROMYELOCYTIC LEUKAEMIA [None]
  - GASTROINTESTINAL HAEMORRHAGE [None]
  - SEPTIC SHOCK [None]
